FAERS Safety Report 10041178 (Version 3)
Quarter: 2014Q2

REPORT INFORMATION
  Report Type: Spontaneous
  Country: IT (occurrence: IT)
  Receive Date: 20140327
  Receipt Date: 20140411
  Transmission Date: 20141212
  Serious: Yes (Hospitalization)
  Sender: FDA-Public Use
  Company Number: IT-PFIZER INC-2014084182

PATIENT
  Age: 68 Year
  Sex: Male
  Weight: 72 kg

DRUGS (3)
  1. INLYTA [Suspect]
     Indication: CLEAR CELL RENAL CELL CARCINOMA
     Dosage: 10 MG, 1X/DAY
     Route: 048
     Dates: start: 20140225, end: 20140308
  2. PANTOPRAZOLE [Concomitant]
     Indication: GASTRITIS
     Dosage: 20 MG, UNK
     Route: 048
  3. PRITOR [Concomitant]
     Dosage: 80 MG, UNK
     Route: 048

REACTIONS (2)
  - Epilepsy [Recovered/Resolved]
  - Brain oedema [Recovered/Resolved]
